FAERS Safety Report 7660084-4 (Version None)
Quarter: 2011Q3

REPORT INFORMATION
  Report Type: 
  Country: None (occurrence: None)
  Receive Date: 20110805
  Receipt Date: 20110725
  Transmission Date: 20111222
  Serious: Yes (Other)
  Sender: FDA-Public Use
  Company Number: PHHY2011US37263

PATIENT
  Sex: Male
  Weight: 75 kg

DRUGS (7)
  1. GLEEVEC [Suspect]
     Indication: GASTRIC CANCER
     Dosage: 200 MG, DAILY
     Route: 048
  2. GLUCOVANCE [Concomitant]
  3. COUMADIN [Concomitant]
  4. ANTIHYPERTENSIVE DRUGS [Concomitant]
  5. ANTICOAGULANTS [Concomitant]
  6. GLEEVEC [Suspect]
     Indication: GASTRIC NEOPLASM
     Dosage: 400 MG, DAILY
     Route: 048
     Dates: start: 20110411
  7. GLEEVEC [Suspect]
     Dosage: 400 MG, DAILY
     Route: 048

REACTIONS (6)
  - DIARRHOEA [None]
  - HYPOGLYCAEMIA [None]
  - HYPOTENSION [None]
  - FATIGUE [None]
  - VISION BLURRED [None]
  - DIZZINESS [None]
